FAERS Safety Report 11730422 (Version 1)
Quarter: 2015Q4

REPORT INFORMATION
  Report Type: Spontaneous
  Country: US (occurrence: US)
  Receive Date: 20151110
  Receipt Date: 20151110
  Transmission Date: 20160304
  Serious: No
  Sender: FDA-Public Use
  Company Number: US-ELI_LILLY_AND_COMPANY-US201201009147

PATIENT
  Sex: Female

DRUGS (1)
  1. FORTEO [Suspect]
     Active Substance: TERIPARATIDE
     Indication: OSTEOPOROSIS
     Dosage: 20 UG, QD
     Dates: start: 20111229, end: 20120122

REACTIONS (9)
  - Mental impairment [Unknown]
  - Visual acuity reduced [Unknown]
  - Mental disorder [Unknown]
  - Blood calcium increased [Unknown]
  - Fatigue [Unknown]
  - Emotional disorder [Unknown]
  - Cataract [Unknown]
  - Depression [Unknown]
  - Crying [Unknown]
